FAERS Safety Report 9190150 (Version 1)
Quarter: 2013Q1

REPORT INFORMATION
  Report Type: Spontaneous
  Country: US (occurrence: None)
  Receive Date: 20120703
  Receipt Date: 20120703
  Transmission Date: 20140127
  Serious: Yes (Other)
  Sender: FDA-Public Use
  Company Number: PHEH2012US006152

PATIENT
  Age: 52 Year
  Sex: Female

DRUGS (5)
  1. GILENYA (FTY) CAPSULE [Concomitant]
     Indication: RELAPSING-REMITTING MULTIPLE SCLEROSIS
     Route: 048
     Dates: start: 201112
  2. INSULIN (INSULIN) [Concomitant]
  3. ZOCOR (SIMVASTATIN) [Concomitant]
  4. LISINOPRIL (LISINOPRIL) [Concomitant]
  5. ASPIRIN (ACETYLSALICYLIC ACID) [Concomitant]

REACTIONS (4)
  - Herpes zoster [None]
  - Lymphocyte count decreased [None]
  - Pain [None]
  - Post herpetic neuralgia [None]
